FAERS Safety Report 14723929 (Version 1)
Quarter: 2018Q2

REPORT INFORMATION
  Report Type: Spontaneous
  Country: US (occurrence: US)
  Receive Date: 20180405
  Receipt Date: 20180405
  Transmission Date: 20180711
  Serious: Yes (Death)
  Sender: FDA-Public Use
  Company Number: US-PFIZER INC-2018137522

PATIENT
  Age: 26 Year
  Sex: Female

DRUGS (2)
  1. CEREBYX [Suspect]
     Active Substance: FOSPHENYTOIN SODIUM
     Indication: STATUS EPILEPTICUS
     Dosage: AT A LITTLE OVER A GRAM, SINGLE (BASED ON WEIGHT, ABOUT 1000MG, ONE TIME DOSE)
     Route: 042
  2. FOSPHENYTOIN SODIUM. [Suspect]
     Active Substance: FOSPHENYTOIN SODIUM
     Indication: STATUS EPILEPTICUS
     Dosage: AT A LITTLE OVER A GRAM, SINGLE (BASED ON WEIGHT, ABOUT 1000MG, ONE TIME DOSE)
     Route: 042
     Dates: start: 20180402, end: 20180402

REACTIONS (4)
  - Cardiac arrest [Fatal]
  - Cardiogenic shock [Fatal]
  - Bradycardia [Fatal]
  - Atrioventricular block [Fatal]

NARRATIVE: CASE EVENT DATE: 20180402
